FAERS Safety Report 15221889 (Version 3)
Quarter: 2023Q2

REPORT INFORMATION
  Report Type: Spontaneous
  Country: US (occurrence: US)
  Receive Date: 20180731
  Receipt Date: 20230518
  Transmission Date: 20230722
  Serious: Yes (Hospitalization, Other)
  Sender: FDA-Public Use
  Company Number: US-MLMSERVICE-20180718-1287921-1

PATIENT
  Age: 21 Year
  Sex: Female

DRUGS (1)
  1. LINEZOLID [Suspect]
     Active Substance: LINEZOLID
     Indication: Antibiotic therapy
     Dosage: UNK, (PROLONGED THERAPY)

REACTIONS (5)
  - Pneumothorax [Recovered/Resolved]
  - Drug reaction with eosinophilia and systemic symptoms [Recovered/Resolved]
  - Langerhans^ cell histiocytosis [Recovered/Resolved]
  - Respiratory failure [Recovered/Resolved]
  - Pleural effusion [Recovered/Resolved]
